FAERS Safety Report 18924650 (Version 1)
Quarter: 2021Q1

REPORT INFORMATION
  Report Type: Spontaneous
  Country: MX (occurrence: MX)
  Receive Date: 20210222
  Receipt Date: 20210222
  Transmission Date: 20210420
  Serious: Yes (Other)
  Sender: FDA-Public Use
  Company Number: MX-PFIZER INC-2021137476

PATIENT
  Age: 61 Year
  Sex: Male

DRUGS (1)
  1. AZULFIDINA [Suspect]
     Active Substance: SULFASALAZINE
     Indication: ANKYLOSING SPONDYLITIS
     Dosage: 2 DF, 2X/DAY

REACTIONS (3)
  - Off label use [Unknown]
  - Drug dependence [Unknown]
  - Joint swelling [Unknown]
